FAERS Safety Report 8359465-5 (Version None)
Quarter: 2012Q2

REPORT INFORMATION
  Report Type: 
  Country: None (occurrence: None)
  Receive Date: 20120515
  Receipt Date: 20120507
  Transmission Date: 20120825
  Serious: Yes (Hospitalization)
  Sender: FDA-Public Use
  Company Number: US-BAYER-2011-018320

PATIENT
  Age: 35 Year
  Sex: Female
  Weight: 89.569 kg

DRUGS (8)
  1. KEPPRA [Concomitant]
  2. YAZ [Suspect]
     Indication: CONTRACEPTION
     Dosage: UNK
     Dates: start: 20080211, end: 20090213
  3. METRONIDAZOLE [Concomitant]
     Route: 067
  4. SENNA-MINT WAF [Concomitant]
  5. FML S.O.P. 0.1 [PERCENT] OINTMENT [Concomitant]
     Route: 047
  6. NEXIUM [Concomitant]
  7. METFORMIN HCL [Concomitant]
     Indication: POLYCYSTIC OVARIES
     Dosage: 500 MG, BID
     Dates: start: 20061001, end: 20090301
  8. FLORASTOR [Concomitant]

REACTIONS (1)
  - CEREBROVASCULAR ACCIDENT [None]
